FAERS Safety Report 16000289 (Version 1)
Quarter: 2019Q1

REPORT INFORMATION
  Report Type: Spontaneous
  Country: US (occurrence: US)
  Receive Date: 20190225
  Receipt Date: 20190225
  Transmission Date: 20190418
  Serious: Yes (Other)
  Sender: FDA-Public Use
  Company Number: US-ELI_LILLY_AND_COMPANY-US201902005049

PATIENT
  Sex: Female

DRUGS (2)
  1. TRULICITY [Suspect]
     Active Substance: DULAGLUTIDE
     Indication: TYPE 2 DIABETES MELLITUS
     Dosage: 1.5 MG, WEEKLY (1/W)
     Route: 058
     Dates: start: 201802
  2. METFORMIN [Concomitant]
     Active Substance: METFORMIN HYDROCHLORIDE
     Indication: TYPE 2 DIABETES MELLITUS
     Dosage: 2 DF, DAILY

REACTIONS (9)
  - Tenosynovitis stenosans [Unknown]
  - Memory impairment [Unknown]
  - Hypoaesthesia [Unknown]
  - Trigger finger [Unknown]
  - Injection site pain [Unknown]
  - Injury [Unknown]
  - Carpal tunnel syndrome [Unknown]
  - Injection site bruising [Unknown]
  - Product dose omission [Unknown]
